FAERS Safety Report 25962849 (Version 1)
Quarter: 2025Q4

REPORT INFORMATION
  Report Type: Spontaneous
  Country: ID (occurrence: ID)
  Receive Date: 20251027
  Receipt Date: 20251027
  Transmission Date: 20260117
  Serious: Yes (Hospitalization)
  Sender: EISAI
  Company Number: ID-Eisai-EC-2025-198523

PATIENT
  Age: 43 Year
  Sex: Male

DRUGS (1)
  1. LENVIMA [Suspect]
     Active Substance: LENVATINIB
     Indication: Thyroid cancer
     Route: 048
     Dates: end: 20251015

REACTIONS (2)
  - Anal fistula [Unknown]
  - Anal haemorrhage [Unknown]

NARRATIVE: CASE EVENT DATE: 20251015
